FAERS Safety Report 6275366-0 (Version None)
Quarter: 2009Q3

REPORT INFORMATION
  Report Type: 
  Country: None (occurrence: None)
  Receive Date: 20090721
  Receipt Date: 20090710
  Transmission Date: 20100115
  Serious: Yes (Other)
  Sender: FDA-Public Use
  Company Number: US-ELI_LILLY_AND_COMPANY-US200907002365

PATIENT
  Age: 13 Year
  Sex: Male

DRUGS (1)
  1. HUMATROPE [Suspect]
     Dosage: UNK, UNKNOWN
     Dates: start: 20080101, end: 20090301

REACTIONS (2)
  - BODY HEIGHT DECREASED [None]
  - FOCAL SEGMENTAL GLOMERULOSCLEROSIS [None]
